FAERS Safety Report 22060831 (Version 1)
Quarter: 2023Q1

REPORT INFORMATION
  Report Type: Report from Study
  Country: CA (occurrence: CA)
  Receive Date: 20230303
  Receipt Date: 20230303
  Transmission Date: 20230417
  Serious: Yes (Hospitalization)
  Sender: FDA-Public Use
  Company Number: CA-JNJFOC-20211107427

PATIENT
  Age: 56 Year
  Sex: Female
  Weight: 57.5 kg

DRUGS (2)
  1. STELARA [Suspect]
     Active Substance: USTEKINUMAB
     Indication: Crohn^s disease
     Dates: start: 20210908
  2. STELARA [Suspect]
     Active Substance: USTEKINUMAB
     Route: 058
     Dates: start: 20211102

REACTIONS (8)
  - Emphysema [Unknown]
  - Bacterial infection [Recovering/Resolving]
  - Viral infection [Recovering/Resolving]
  - Arthritis [Recovered/Resolved]
  - Weight decreased [Recovered/Resolved]
  - Urinary tract infection [Unknown]
  - Abdominal pain lower [Not Recovered/Not Resolved]
  - Diarrhoea [Unknown]

NARRATIVE: CASE EVENT DATE: 20210908
